FAERS Safety Report 4684364-X (Version None)
Quarter: 2005Q2

REPORT INFORMATION
  Report Type: 
  Country: None (occurrence: None)
  Receive Date: 20050531
  Receipt Date: 20040811
  Transmission Date: 20051028
  Serious: Yes (Other)
  Sender: FDA-Public Use
  Company Number: 200416038US

PATIENT
  Age: 71 Year
  Sex: Female
  Weight: 95.5 kg

DRUGS (4)
  1. LOVENOX [Suspect]
     Indication: ACUTE CORONARY SYNDROME
     Dosage: 1 MG/KG
     Dates: start: 20040809
  2. WARFARIN SODIUM [Suspect]
     Indication: ATRIAL FIBRILLATION
  3. OTHER MEDICATIONS [Concomitant]
  4. ASPIRIN [Concomitant]

REACTIONS (1)
  - RETROPERITONEAL HAEMORRHAGE [None]
